FAERS Safety Report 7394185-5 (Version None)
Quarter: 2011Q2

REPORT INFORMATION
  Report Type: 
  Country: None (occurrence: None)
  Receive Date: 20110405
  Receipt Date: 20110323
  Transmission Date: 20111010
  Serious: Yes (Hospitalization, Other)
  Sender: FDA-Public Use
  Company Number: ES-ELI_LILLY_AND_COMPANY-ES201103006707

PATIENT
  Sex: Female
  Weight: 67 kg

DRUGS (7)
  1. ALDACTONE [Concomitant]
     Indication: ARRHYTHMIA
     Dosage: 25 MG, QD
     Route: 048
  2. NEXIUM [Concomitant]
     Dosage: 40 MG, QD
     Route: 048
  3. RIVOTRIL [Concomitant]
     Indication: CONVULSION
     Dosage: 0.5 MG, QD
     Route: 048
  4. ATENOLOL [Concomitant]
     Indication: HYPERTENSION
     Dosage: 50 MG, QD
     Route: 048
  5. ASPIRIN [Concomitant]
     Indication: CARDIAC DISORDER
     Dosage: 100 MG, UNK
     Route: 048
  6. NITROGLYCERIN [Concomitant]
     Indication: CARDIAC VALVE DISEASE
     Dosage: 1 DF, QD
  7. FORTEO [Suspect]
     Indication: OSTEOPOROSIS
     Dosage: 20 UG, QD
     Route: 058
     Dates: start: 20110124, end: 20110317

REACTIONS (3)
  - METABOLIC DISORDER [None]
  - EPILEPSY [None]
  - COMA [None]
